FAERS Safety Report 19703533 (Version 1)
Quarter: 2021Q3

REPORT INFORMATION
  Report Type: Spontaneous
  Country: RO (occurrence: RO)
  Receive Date: 20210816
  Receipt Date: 20210816
  Transmission Date: 20211014
  Serious: Yes (Hospitalization)
  Sender: FDA-Public Use
  Company Number: RO-BAUSCH-BL-2020-034892

PATIENT
  Age: 63 Year
  Sex: Male

DRUGS (8)
  1. PLAVIX [Concomitant]
     Active Substance: CLOPIDOGREL BISULFATE
     Indication: CARDIAC DISORDER
     Route: 065
  2. BETALOC (METOPROLOL TARTRATE) [Concomitant]
     Indication: CARDIAC DISORDER
     Route: 065
  3. LENALIDOMIDE [Suspect]
     Active Substance: LENALIDOMIDE
     Indication: PLASMA CELL MYELOMA
     Route: 065
     Dates: start: 20201030
  4. SYMPTOMAL [Concomitant]
     Indication: CARDIAC DISORDER
     Route: 065
  5. DIUREX A [Concomitant]
     Indication: CARDIAC DISORDER
     Route: 065
  6. CONTROLOC [Concomitant]
     Active Substance: PANTOPRAZOLE SODIUM
     Indication: CARDIAC DISORDER
     Route: 065
  7. DEXAMETHASONE. [Suspect]
     Active Substance: DEXAMETHASONE
     Indication: PLASMA CELL MYELOMA
     Route: 065
     Dates: start: 20201030
  8. IXAZOMIB [Suspect]
     Active Substance: IXAZOMIB
     Indication: PLASMA CELL MYELOMA
     Route: 048
     Dates: start: 20201030

REACTIONS (3)
  - Off label use [Unknown]
  - Chest pain [Recovering/Resolving]
  - Nausea [Recovered/Resolved]

NARRATIVE: CASE EVENT DATE: 20210719
